FAERS Safety Report 10551581 (Version 2)
Quarter: 2014Q4

REPORT INFORMATION
  Report Type: Spontaneous
  Country: US (occurrence: None)
  Receive Date: 20141027
  Receipt Date: 20141104
  Transmission Date: 20150529
  Serious: Yes (Hospitalization, Other)
  Sender: FDA-Public Use
  Company Number: 2014-US-012001

PATIENT
  Age: 63 Year
  Sex: Female
  Weight: 148.8 kg

DRUGS (1)
  1. XYREM [Suspect]
     Active Substance: SODIUM OXYBATE
     Indication: HYPERSOMNIA
     Route: 048
     Dates: start: 201401, end: 201404

REACTIONS (9)
  - Gastrectomy [None]
  - Migraine [None]
  - Restless legs syndrome [None]
  - Hallucination, olfactory [None]
  - Myalgia [None]
  - Obesity surgery [None]
  - Sleep apnoea syndrome [None]
  - Obesity [None]
  - Off label use [None]

NARRATIVE: CASE EVENT DATE: 20140918
